FAERS Safety Report 7229684-X (Version None)
Quarter: 2011Q1

REPORT INFORMATION
  Report Type: 
  Country: None (occurrence: None)
  Receive Date: 20110117
  Receipt Date: 20110106
  Transmission Date: 20110831
  Serious: Yes (Other)
  Sender: FDA-Public Use
  Company Number: PHHY2011IT01439

PATIENT
  Age: 37 Year
  Sex: Female

DRUGS (2)
  1. CORTICOSTEROIDS [Concomitant]
     Dosage: UNK
  2. CYCLOSPORINE [Suspect]
     Indication: DERMATITIS CONTACT
     Dosage: 250 MG, UNK

REACTIONS (3)
  - DISEASE PROGRESSION [None]
  - DERMATITIS CONTACT [None]
  - SKIN LESION [None]
